FAERS Safety Report 7452584-7 (Version None)
Quarter: 2011Q2

REPORT INFORMATION
  Report Type: 
  Country: None (occurrence: None)
  Receive Date: 20110502
  Receipt Date: 20100920
  Transmission Date: 20111010
  Serious: No
  Sender: FDA-Public Use
  Company Number: US-ASTRAZENECA-2010SE44082

PATIENT
  Age: 59 Year
  Sex: Female
  Weight: 72.6 kg

DRUGS (2)
  1. CRESTOR [Suspect]
     Route: 048
     Dates: start: 20050101
  2. NEXIUM [Suspect]
     Indication: GASTRIC DISORDER
     Dosage: DAILY
     Route: 048

REACTIONS (2)
  - DRUG DOSE OMISSION [None]
  - SOMNOLENCE [None]
